FAERS Safety Report 20355475 (Version 1)
Quarter: 2022Q1

REPORT INFORMATION
  Report Type: Report from Study
  Country: CA (occurrence: CA)
  Receive Date: 20220120
  Receipt Date: 20220120
  Transmission Date: 20220423
  Serious: Yes (Hospitalization)
  Sender: FDA-Public Use
  Company Number: CA-HLS-202200075

PATIENT
  Age: 49 Year
  Sex: Male

DRUGS (1)
  1. CLOZARIL [Suspect]
     Active Substance: CLOZAPINE
     Indication: Product used for unknown indication
     Route: 048
     Dates: start: 19930830

REACTIONS (6)
  - Aggression [Unknown]
  - Catatonia [Unknown]
  - Psychiatric decompensation [Unknown]
  - Treatment noncompliance [Unknown]
  - Posturing [Unknown]
  - Abnormal behaviour [Unknown]
